FAERS Safety Report 4997096-5 (Version None)
Quarter: 2006Q2

REPORT INFORMATION
  Report Type: 
  Country: None (occurrence: None)
  Receive Date: 20060508
  Receipt Date: 20060508
  Transmission Date: 20061013
  Serious: Yes (Hospitalization)
  Sender: FDA-Public Use
  Company Number: None

PATIENT
  Age: 89 Year
  Sex: Male
  Weight: 58 kg

DRUGS (8)
  1. WARFARIN SODIUM [Suspect]
     Indication: CEREBROVASCULAR ACCIDENT
     Dosage: 5 MG DAILY PO
     Route: 048
  2. PENICILLIN VK [Suspect]
     Indication: INFECTION
     Dosage: 250 MG BID PO
     Route: 048
     Dates: start: 20050224, end: 20050228
  3. DONEPEZIL HCL [Concomitant]
  4. FELODIPINE [Concomitant]
  5. FLUTAMIDE [Concomitant]
  6. LISINOPRIL [Concomitant]
  7. TERAZOCIN [Concomitant]
  8. GOSERELIN [Concomitant]

REACTIONS (7)
  - COUGH [None]
  - HAEMATOCRIT DECREASED [None]
  - INFECTION [None]
  - INTERNATIONAL NORMALISED RATIO INCREASED [None]
  - LETHARGY [None]
  - PNEUMONIA [None]
  - PYREXIA [None]
